FAERS Safety Report 10231569 (Version 1)
Quarter: 2014Q2

REPORT INFORMATION
  Report Type: Spontaneous
  Country: US (occurrence: US)
  Receive Date: 20140611
  Receipt Date: 20140611
  Transmission Date: 20141212
  Serious: No
  Sender: FDA-Public Use
  Company Number: US-009507513-1405USA011060

PATIENT
  Sex: Female

DRUGS (2)
  1. NEXPLANON [Suspect]
     Indication: CONTRACEPTION
     Dosage: UNK
     Route: 059
     Dates: start: 201309
  2. PROZAC [Concomitant]

REACTIONS (4)
  - Device kink [Not Recovered/Not Resolved]
  - Menorrhagia [Recovered/Resolved]
  - Menorrhagia [Not Recovered/Not Resolved]
  - Oligomenorrhoea [Recovered/Resolved]
